FAERS Safety Report 6398941-1 (Version None)
Quarter: 2009Q4

REPORT INFORMATION
  Report Type: 
  Country: None (occurrence: None)
  Receive Date: 20091013
  Receipt Date: 20090930
  Transmission Date: 20100525
  Serious: Yes (Hospitalization, Other)
  Sender: FDA-Public Use
  Company Number: DE-ELI_LILLY_AND_COMPANY-DE200907003595

PATIENT
  Sex: Male

DRUGS (5)
  1. FORTEO [Suspect]
     Indication: OSTEOPOROSIS
     Dosage: 20 UG, UNKNOWN
     Route: 058
     Dates: start: 20090630, end: 20090713
  2. TRAMAL /00599201/ [Concomitant]
     Dosage: UNK, 2/D
     Route: 065
  3. PLANUM [Concomitant]
     Dosage: UNK, EACH EVENING
     Route: 065
  4. FORMATRIS [Concomitant]
     Dosage: 2 D/F, 2/D
     Route: 065
  5. ALLOPURINOL [Concomitant]
     Dosage: 300 D/F, DAILY (1/D)
     Route: 065

REACTIONS (4)
  - APATHY [None]
  - CHRONIC OBSTRUCTIVE PULMONARY DISEASE [None]
  - HYPOTONIA [None]
  - PLASMACYTOMA [None]
